FAERS Safety Report 6016878-4 (Version None)
Quarter: 2008Q4

REPORT INFORMATION
  Report Type: 
  Country: None (occurrence: None)
  Receive Date: 20081222
  Receipt Date: 20081124
  Transmission Date: 20090506
  Serious: Yes (Hospitalization)
  Sender: FDA-Public Use
  Company Number: US-GENENTECH-272402

PATIENT
  Sex: Male
  Weight: 84 kg

DRUGS (2)
  1. BEVACIZUMAB [Suspect]
     Indication: NON-SMALL CELL LUNG CANCER
     Dosage: 860 MG, Q14D
     Route: 042
     Dates: start: 20081007
  2. GEMCITABINE HCL [Suspect]
     Indication: NON-SMALL CELL LUNG CANCER
     Dosage: 3980 MG, Q14D
     Route: 042
     Dates: start: 20081007

REACTIONS (3)
  - CHILLS [None]
  - COUGH [None]
  - PYREXIA [None]
